FAERS Safety Report 13874650 (Version 1)
Quarter: 2017Q3

REPORT INFORMATION
  Report Type: Spontaneous
  Country: US (occurrence: US)
  Receive Date: 20170816
  Receipt Date: 20170816
  Transmission Date: 20171127
  Serious: No
  Sender: FDA-Public Use
  Company Number: US-ROCHE-1144166

PATIENT
  Age: 87 Year
  Sex: Female

DRUGS (1)
  1. RANIBIZUMAB. [Suspect]
     Active Substance: RANIBIZUMAB
     Indication: NEOVASCULAR AGE-RELATED MACULAR DEGENERATION
     Route: 050
     Dates: start: 20080912

REACTIONS (3)
  - Cataract [Unknown]
  - Post procedural complication [Unknown]
  - Visual impairment [Unknown]

NARRATIVE: CASE EVENT DATE: 20111010
